FAERS Safety Report 8301163 (Version 2)
Quarter: 2012Q4

REPORT INFORMATION
  Report Type: 
  Country: US (occurrence: US)
  Receive Date: 20111219
  Receipt Date: 20121026
  Transmission Date: 20130627
  Serious: No
  Sender: FDA-Public Use
  Company Number: US-ASTRAZENECA-2011SE27108

PATIENT
  Age: 60 Year
  Sex: Male

DRUGS (5)
  1. CRESTOR [Suspect]
     Route: 048
  2. HCTZ [Suspect]
     Route: 065
  3. MILD PAIN PILL [Concomitant]
  4. MILD TRANQUILIZER [Concomitant]
  5. SLEEP AIDS [Concomitant]

REACTIONS (5)
  - Dry mouth [Unknown]
  - Paraesthesia [Unknown]
  - Weight increased [Unknown]
  - Exostosis [Unknown]
  - Blood pressure increased [Unknown]
